FAERS Safety Report 10931168 (Version 1)
Quarter: 2015Q1

REPORT INFORMATION
  Report Type: Spontaneous
  Country: US (occurrence: US)
  Receive Date: 20150319
  Receipt Date: 20150319
  Transmission Date: 20150721
  Serious: No
  Sender: FDA-Public Use
  Company Number: US-PFIZER INC-2015095339

PATIENT
  Age: 74 Year
  Sex: Female
  Weight: 77 kg

DRUGS (4)
  1. TAMOXIFEN [Concomitant]
     Active Substance: TAMOXIFEN
     Indication: BREAST CANCER
     Dosage: 20 MG, 1X/DAY
  2. ATENOLOL. [Concomitant]
     Active Substance: ATENOLOL
     Indication: BLOOD PRESSURE
     Dosage: 50 MG, 1X/DAY
  3. PRAVASTATIN [Concomitant]
     Active Substance: PRAVASTATIN\PRAVASTATIN SODIUM
     Indication: BLOOD CHOLESTEROL ABNORMAL
     Dosage: 40 MG, 1X/DAY
  4. ALPRAZOLAM. [Suspect]
     Active Substance: ALPRAZOLAM
     Indication: ANXIETY
     Dosage: 0.5 MG, 3X/DAY
     Route: 048
     Dates: start: 20150302

REACTIONS (5)
  - Anxiety [Recovering/Resolving]
  - Heart rate increased [Recovering/Resolving]
  - Tremor [Recovering/Resolving]
  - Drug ineffective [Recovering/Resolving]
  - Panic reaction [Recovering/Resolving]

NARRATIVE: CASE EVENT DATE: 20150302
